FAERS Safety Report 11030522 (Version 2)
Quarter: 2015Q2

REPORT INFORMATION
  Report Type: Spontaneous
  Country: US (occurrence: US)
  Receive Date: 20150415
  Receipt Date: 20150527
  Transmission Date: 20150821
  Serious: No
  Sender: FDA-Public Use
  Company Number: US-ASTRAZENECA-2015SE33698

PATIENT
  Age: 19327 Day
  Sex: Male

DRUGS (1)
  1. PULMICORT FLEXHALER [Suspect]
     Active Substance: BUDESONIDE
     Indication: DYSPNOEA
     Route: 055
     Dates: start: 20150322

REACTIONS (4)
  - Circumstance or information capable of leading to medication error [Unknown]
  - Obstructive airways disorder [Unknown]
  - Drug dose omission [Unknown]
  - Intentional product misuse [Unknown]

NARRATIVE: CASE EVENT DATE: 20150322
